FAERS Safety Report 8315800 (Version 2)
Quarter: 2013Q3

REPORT INFORMATION
  Report Type: Spontaneous
  Country: US (occurrence: US)
  Receive Date: 20111229
  Receipt Date: 20130926
  Transmission Date: 20140515
  Serious: Yes (Hospitalization)
  Sender: FDA-Public Use
  Company Number: US-GLAXOSMITHKLINE-A0896433A

PATIENT
  Age: 75 Year
  Sex: Male
  Weight: 73.2 kg

DRUGS (1)
  1. AVANDIA [Suspect]
     Indication: DIABETES MELLITUS
     Dosage: 4MG PER DAY
     Route: 048
     Dates: start: 20020418, end: 20060815

REACTIONS (6)
  - Atrioventricular block complete [Unknown]
  - Atrioventricular block second degree [Unknown]
  - Cardiac disorder [Unknown]
  - Cardiovascular disorder [Unknown]
  - Atrial fibrillation [Unknown]
  - Cardiac failure congestive [Unknown]
